FAERS Safety Report 4643466-4 (Version None)
Quarter: 2005Q2

REPORT INFORMATION
  Report Type: 
  Country: None (occurrence: None)
  Receive Date: 20050323
  Receipt Date: 20040719
  Transmission Date: 20051028
  Serious: Yes (Other)
  Sender: FDA-Public Use
  Company Number: K200401082

PATIENT
  Age: 69 Year
  Sex: Female
  Weight: 68.9 kg

DRUGS (6)
  1. RAMIPRIL [Suspect]
     Indication: HYPERTENSION
     Dosage: ORAL; 20 MG, QD, ORAL
     Route: 048
     Dates: start: 20020501, end: 20021201
  2. RAMIPRIL [Suspect]
     Indication: HYPERTENSION
     Dosage: ORAL; 20 MG, QD, ORAL
     Route: 048
     Dates: start: 20040301, end: 20040715
  3. FUROSEMIDE (FUROSEMIDE) [Concomitant]
  4. COUMADIN [Concomitant]
  5. BEXTRA [Concomitant]
  6. ZITHROMAX [Concomitant]

REACTIONS (1)
  - SUDDEN HEARING LOSS [None]
